FAERS Safety Report 8332993-4 (Version None)
Quarter: 2012Q2

REPORT INFORMATION
  Report Type: 
  Country: None (occurrence: None)
  Receive Date: 20120503
  Receipt Date: 20120425
  Transmission Date: 20120825
  Serious: Yes (Death, Disabling, Other)
  Sender: FDA-Public Use
  Company Number: PHHY2012FR035819

PATIENT
  Sex: Female

DRUGS (15)
  1. ACETAMINOPHEN W/ CODEINE [Concomitant]
     Dosage: 1 G, PRN
  2. KETOPROFEN [Suspect]
     Dosage: 200 MG, QD
     Route: 048
     Dates: start: 20110526, end: 20110611
  3. BISOPROLOL FUMARATE [Concomitant]
     Dosage: UNK
     Dates: start: 20110526, end: 20110603
  4. RABEPRAZOLE SODIUM [Concomitant]
     Dosage: 20 MG, QD
  5. XARELTO [Suspect]
     Dosage: 10 MG, QD
     Route: 048
     Dates: start: 20110530
  6. BISOPROLOL FUMARATE AND HYDROCHLOROTHIAZIDE [Suspect]
     Dosage: 2.5/6.25 MG
     Route: 048
     Dates: start: 20110603, end: 20110616
  7. WYTENS                                  /SPA/ [Concomitant]
     Dosage: UNK
  8. RABEPRAZOLE SODIUM [Concomitant]
     Dosage: UNK
  9. TEGRETOL-XR [Suspect]
     Dosage: 200 MG, QD
     Route: 048
     Dates: end: 20110616
  10. BISOPROLOL FUMARATE AND HYDROCHLOROTHIAZIDE [Suspect]
     Dosage: 2.5/6.25 MG
     Route: 048
  11. LEVOTHYROXINE SODIUM [Concomitant]
     Dosage: UNK
  12. NEXIUM [Concomitant]
     Dosage: UNK
     Dates: start: 20110526, end: 20110603
  13. RENITEC                                 /NET/ [Concomitant]
     Dosage: UNK
  14. BISOPROLOL FUMARATE [Concomitant]
     Dosage: UNK
  15. URSOLVAN [Concomitant]
     Dosage: UNK

REACTIONS (23)
  - HEPATIC LESION [None]
  - HEPATIC FUNCTION ABNORMAL [None]
  - DEATH [None]
  - HYPERTENSIVE CRISIS [None]
  - BLOOD CREATININE INCREASED [None]
  - RENAL FAILURE [None]
  - ANURIA [None]
  - PYREXIA [None]
  - INTRAVENTRICULAR HAEMORRHAGE [None]
  - VOMITING [None]
  - DIARRHOEA HAEMORRHAGIC [None]
  - PRURITUS [None]
  - DILATATION INTRAHEPATIC DUCT ACQUIRED [None]
  - INTRACRANIAL PRESSURE INCREASED [None]
  - HEPATORENAL SYNDROME [None]
  - ABDOMINAL PAIN [None]
  - PERIPORTAL SINUS DILATATION [None]
  - COMA [None]
  - RENAL TUBULAR NECROSIS [None]
  - CEREBRAL HAEMORRHAGE [None]
  - CHOLESTASIS [None]
  - CHOLANGITIS [None]
  - SERUM FERRITIN INCREASED [None]
